FAERS Safety Report 8221362-3 (Version None)
Quarter: 2012Q1

REPORT INFORMATION
  Report Type: 
  Country: None (occurrence: None)
  Receive Date: 20120320
  Receipt Date: 20120315
  Transmission Date: 20120608
  Serious: Yes (Other)
  Sender: FDA-Public Use
  Company Number: PHHY2012JP008881

PATIENT
  Sex: Male
  Weight: 59 kg

DRUGS (1)
  1. ZOMETA [Suspect]
     Indication: METASTASES TO BONE
     Dosage: 4 MG, PER ADMINISTRATION EVERY 4 WEEKS
     Route: 041
     Dates: start: 20090831, end: 20111130

REACTIONS (7)
  - PAIN IN JAW [None]
  - PURULENT DISCHARGE [None]
  - OSTEOMYELITIS [None]
  - BONE LESION [None]
  - EXPOSED BONE IN JAW [None]
  - OSTEONECROSIS OF JAW [None]
  - FISTULA [None]
